FAERS Safety Report 4607285-7 (Version None)
Quarter: 2005Q1

REPORT INFORMATION
  Report Type: 
  Country: None (occurrence: None)
  Receive Date: 20050309
  Receipt Date: 20050221
  Transmission Date: 20050727
  Serious: Yes (Death, Life-Threatening, Congenital Anomaly, Other)
  Sender: FDA-Public Use
  Company Number: A-CH2003-03900

PATIENT
  Sex: Female

DRUGS (1)
  1. TRACLEER [Suspect]
     Indication: PULMONARY HYPERTENSION
     Dosage: ORAL
     Route: 048

REACTIONS (8)
  - CAESAREAN SECTION [None]
  - CEREBRAL HAEMORRHAGE NEONATAL [None]
  - DEATH NEONATAL [None]
  - DRUG EXPOSURE DURING PREGNANCY [None]
  - HEPATIC ENZYME INCREASED [None]
  - NEONATAL RESPIRATORY DISTRESS SYNDROME [None]
  - PREGNANCY [None]
  - PREMATURE LABOUR [None]
